FAERS Safety Report 9012864 (Version 3)
Quarter: 2014Q3

REPORT INFORMATION
  Report Type: Spontaneous
  Country: US (occurrence: US)
  Receive Date: 20130114
  Receipt Date: 20140707
  Transmission Date: 20150326
  Serious: Yes (Hospitalization, Other)
  Sender: FDA-Public Use
  Company Number: US-009507513-1301USA005267

PATIENT
  Sex: Female
  Weight: 90.7 kg

DRUGS (1)
  1. NUVARING [Suspect]
     Active Substance: ETHINYL ESTRADIOL\ETONOGESTREL
     Indication: CONTRACEPTION
     Dosage: UNK
     Route: 067
     Dates: start: 200909, end: 201010

REACTIONS (10)
  - Cough [Unknown]
  - Leukocytosis [Unknown]
  - Vena cava filter insertion [Unknown]
  - Coagulopathy [Unknown]
  - Deep vein thrombosis [Recovered/Resolved]
  - Vascular stent insertion [Unknown]
  - Thrombectomy [Unknown]
  - Nausea [Unknown]
  - Sinusitis [Unknown]
  - Venous stenosis [Unknown]

NARRATIVE: CASE EVENT DATE: 201010
